FAERS Safety Report 6961434-4 (Version None)
Quarter: 2010Q3

REPORT INFORMATION
  Report Type: 
  Country: None (occurrence: None)
  Receive Date: 20100901
  Receipt Date: 20100317
  Transmission Date: 20110219
  Serious: Yes (Other)
  Sender: FDA-Public Use
  Company Number: EG-WYE-H17210110

PATIENT
  Age: 41 Year
  Sex: Female

DRUGS (2)
  1. TEMSIROLIMUS [Suspect]
     Indication: RENAL CELL CARCINOMA
     Route: 042
     Dates: start: 20090701, end: 20091201
  2. SUTENT [Concomitant]
     Indication: RENAL CELL CARCINOMA
     Dosage: UNKNOWN DOSE - 4 WEEKS ON, 2 WEEKS OFF
     Route: 065

REACTIONS (2)
  - BLOOD CHOLESTEROL ABNORMAL [None]
  - BLOOD TRIGLYCERIDES ABNORMAL [None]
